FAERS Safety Report 25614123 (Version 1)
Quarter: 2025Q3

REPORT INFORMATION
  Report Type: Spontaneous
  Country: EU (occurrence: EU)
  Receive Date: 20250728
  Receipt Date: 20250728
  Transmission Date: 20251020
  Serious: Yes (Death, Other)
  Sender: GILEAD
  Company Number: EU-GILEAD-2025-0721838

PATIENT
  Age: 71 Year
  Sex: Male

DRUGS (2)
  1. TRODELVY [Suspect]
     Active Substance: SACITUZUMAB GOVITECAN-HZIY
     Indication: Product used for unknown indication
     Route: 065
  2. TRODELVY [Suspect]
     Active Substance: SACITUZUMAB GOVITECAN-HZIY
     Route: 065

REACTIONS (4)
  - Sepsis [Fatal]
  - Anaemia [Fatal]
  - Perforation [Fatal]
  - Neutropenia [Unknown]

NARRATIVE: CASE EVENT DATE: 20241105
